FAERS Safety Report 17895194 (Version 1)
Quarter: 2020Q2

REPORT INFORMATION
  Report Type: Other
  Country: AU (occurrence: AU)
  Receive Date: 20200615
  Receipt Date: 20200615
  Transmission Date: 20200714
  Serious: Yes (Hospitalization)
  Sender: FDA-Public Use
  Company Number: AU-NUVO PHARMACEUTICALS INC-2085843

PATIENT
  Age: 77 Year
  Sex: Female

DRUGS (6)
  1. OXYCODONE HYDROCHLORIDE. [Suspect]
     Active Substance: OXYCODONE HYDROCHLORIDE
     Indication: BIPOLAR DISORDER
     Route: 065
  2. BUPRENORPHINE. [Suspect]
     Active Substance: BUPRENORPHINE
     Route: 065
  3. SERTRALINE [Suspect]
     Active Substance: SERTRALINE HYDROCHLORIDE
     Route: 065
  4. TEMAZEPAM. [Suspect]
     Active Substance: TEMAZEPAM
     Route: 065
  5. DIAZEPAM. [Suspect]
     Active Substance: DIAZEPAM
     Route: 065
  6. AMITRIPTYLINE HYDROCHLORIDE. [Suspect]
     Active Substance: AMITRIPTYLINE HYDROCHLORIDE
     Route: 065

REACTIONS (6)
  - Dysarthria [Recovering/Resolving]
  - Overdose [Recovering/Resolving]
  - Bruxism [Recovering/Resolving]
  - Abnormal behaviour [Recovering/Resolving]
  - Fall [Recovering/Resolving]
  - Hypersomnia [Recovering/Resolving]
